FAERS Safety Report 20709951 (Version 1)
Quarter: 2022Q2

REPORT INFORMATION
  Report Type: Spontaneous
  Country: US (occurrence: US)
  Receive Date: 20220414
  Receipt Date: 20220414
  Transmission Date: 20220720
  Serious: No
  Sender: FDA-Public Use
  Company Number: US-TOPROL-2022000075

PATIENT
  Age: 85 Year
  Sex: Female

DRUGS (1)
  1. METOPROLOL SUCCINATE [Suspect]
     Active Substance: METOPROLOL SUCCINATE
     Indication: Heart valve replacement
     Dates: start: 20211110

REACTIONS (3)
  - Balance disorder [Unknown]
  - Visual impairment [Unknown]
  - Product use in unapproved indication [Unknown]
